FAERS Safety Report 5230239-7 (Version None)
Quarter: 2007Q1

REPORT INFORMATION
  Report Type: 
  Country: None (occurrence: None)
  Receive Date: 20070206
  Receipt Date: 20061017
  Transmission Date: 20070707
  Serious: No
  Sender: FDA-Public Use
  Company Number: US-GLAXOSMITHKLINE-A0623914A

PATIENT
  Sex: Female

DRUGS (1)
  1. PAXIL CR [Suspect]
     Indication: DEPRESSION
     Dosage: 37.5MG TWICE PER DAY
     Route: 048

REACTIONS (9)
  - ADVERSE EVENT [None]
  - ANXIETY [None]
  - CRYING [None]
  - DIZZINESS [None]
  - FATIGUE [None]
  - FEAR [None]
  - MENTAL DISORDER [None]
  - PANIC REACTION [None]
  - STOMACH DISCOMFORT [None]
